FAERS Safety Report 4377988-0 (Version None)
Quarter: 2004Q2

REPORT INFORMATION
  Report Type: 
  Country: None (occurrence: None)
  Receive Date: 20040608
  Receipt Date: 20040528
  Transmission Date: 20050107
  Serious: Yes (Hospitalization)
  Sender: FDA-Public Use
  Company Number: STA-AE-04-MTX-218

PATIENT
  Age: 72 Year
  Sex: Female

DRUGS (13)
  1. RHEUMATREX [Suspect]
     Indication: RHEUMATOID ARTHRITIS
     Dosage: 6 MG 1X PER 1 WK, ORAL
     Route: 048
     Dates: start: 20010803, end: 20020501
  2. RHEUMATREX [Suspect]
     Indication: RHEUMATOID ARTHRITIS
     Dosage: 6 MG 1X PER 1 WK, ORAL
     Route: 048
     Dates: start: 20030901
  3. RHEUMATREX [Suspect]
     Indication: RHEUMATOID ARTHRITIS
     Dosage: 6 MG 1X PER 1 WK, ORAL
     Route: 048
     Dates: start: 20031107, end: 20031229
  4. PREDNISOLONE [Suspect]
     Dosage: 8 MG 1X PER 1 WK, ORAL
     Route: 048
     Dates: start: 20031107
  5. REMICADE [Suspect]
     Dosage: 3MG/KG PER 1 DAY, INTRAVENOUS
     Route: 042
     Dates: start: 20031110, end: 20031110
  6. REMICADE [Suspect]
     Dosage: 3MG/KG PER 1 DAY, INTRAVENOUS
     Route: 042
     Dates: start: 20031125, end: 20031125
  7. REMICADE [Suspect]
     Dosage: 3MG/KG PER 1 DAY, INTRAVENOUS
     Route: 042
     Dates: start: 20031224, end: 20031224
  8. RIMATIL (BUCILLAMINE) [Concomitant]
  9. LANSOPRAZOLE [Concomitant]
  10. AMLODIPINE BESYLATE [Concomitant]
  11. ALENDRONATE SODIUM [Concomitant]
  12. LAC B (LACTOBACILLUS, LYOPHILIZED) [Concomitant]
  13. PENFILL N (INSULIN HUMAN INJAECTION, ISOPHANE) [Concomitant]

REACTIONS (3)
  - BACTERIAL INFECTION [None]
  - PYURIA [None]
  - URINARY TRACT INFECTION [None]
